FAERS Safety Report 10834452 (Version 1)
Quarter: 2015Q1

REPORT INFORMATION
  Report Type: Report from Study
  Country: US (occurrence: US)
  Receive Date: 20150219
  Receipt Date: 20150219
  Transmission Date: 20150721
  Serious: No
  Sender: FDA-Public Use
  Company Number: US-ABBVIE-14P-163-1210057-00

PATIENT
  Age: 39 Year
  Sex: Male

DRUGS (2)
  1. HUMIRA [Suspect]
     Active Substance: ADALIMUMAB
     Indication: CROHN^S DISEASE
     Dates: start: 20140215, end: 20140215
  2. HUMIRA [Suspect]
     Active Substance: ADALIMUMAB

REACTIONS (8)
  - Drug dose omission [Not Recovered/Not Resolved]
  - Fatigue [Not Recovered/Not Resolved]
  - Muscle spasms [Not Recovered/Not Resolved]
  - Feeling hot [Not Recovered/Not Resolved]
  - Chest pain [Not Recovered/Not Resolved]
  - Anxiety [Not Recovered/Not Resolved]
  - Lymphadenopathy [Not Recovered/Not Resolved]
  - Oropharyngeal pain [Not Recovered/Not Resolved]

NARRATIVE: CASE EVENT DATE: 20140215
